FAERS Safety Report 12212613 (Version 1)
Quarter: 2016Q1

REPORT INFORMATION
  Report Type: Report from Study
  Country: US (occurrence: US)
  Receive Date: 20160328
  Receipt Date: 20160328
  Transmission Date: 20160526
  Serious: No
  Sender: FDA-Public Use
  Company Number: US-AMGEN-USASP2016035505

PATIENT
  Age: 58 Year
  Sex: Female

DRUGS (1)
  1. ENBREL [Suspect]
     Active Substance: ETANERCEPT
     Indication: RHEUMATOID ARTHRITIS
     Dosage: UNK , QWK
     Route: 065
     Dates: start: 201601

REACTIONS (9)
  - Injection site erythema [Unknown]
  - Feeling hot [Unknown]
  - Erythema [Unknown]
  - Swelling [Unknown]
  - Pruritus [Unknown]
  - Pyrexia [Unknown]
  - Urticaria [Unknown]
  - Injection site pain [Unknown]
  - Injection site pruritus [Unknown]

NARRATIVE: CASE EVENT DATE: 2016
